FAERS Safety Report 17259984 (Version 4)
Quarter: 2020Q1

REPORT INFORMATION
  Report Type: Report from Study
  Country: None (occurrence: US)
  Receive Date: 20200111
  Receipt Date: 20200323
  Transmission Date: 20200409
  Serious: Yes (Other)
  Sender: FDA-Public Use
  Company Number: US-ABBVIE-19K-163-3201413-00

PATIENT
  Age: 75 Year
  Sex: Male

DRUGS (4)
  1. HUMIRA [Suspect]
     Active Substance: ADALIMUMAB
     Indication: RHEUMATOID ARTHRITIS
     Route: 058
     Dates: start: 201404
  2. INFLUENZA VACCIN [Suspect]
     Active Substance: INFLUENZA VIRUS VACCINE
     Indication: PRODUCT USED FOR UNKNOWN INDICATION
     Route: 065
  3. HUMIRA [Suspect]
     Active Substance: ADALIMUMAB
     Indication: RHEUMATOID ARTHRITIS
     Route: 058
     Dates: start: 20140101
  4. HUMIRA [Suspect]
     Active Substance: ADALIMUMAB
     Route: 058
     Dates: end: 201911

REACTIONS (14)
  - Eye disorder [Unknown]
  - Neck pain [Unknown]
  - Obstructive airways disorder [Unknown]
  - Arthralgia [Not Recovered/Not Resolved]
  - Arthritis [Not Recovered/Not Resolved]
  - Tooth infection [Unknown]
  - Pain in extremity [Not Recovered/Not Resolved]
  - Head discomfort [Unknown]
  - Sinusitis [Unknown]
  - Hypersensitivity [Unknown]
  - Respiratory disorder [Recovering/Resolving]
  - Sinus headache [Recovering/Resolving]
  - Toothache [Unknown]
  - Malaise [Unknown]

NARRATIVE: CASE EVENT DATE: 20200303
